FAERS Safety Report 16986941 (Version 1)
Quarter: 2019Q4

REPORT INFORMATION
  Report Type: Spontaneous
  Country: BR (occurrence: BR)
  Receive Date: 20191102
  Receipt Date: 20191102
  Transmission Date: 20200122
  Serious: Yes (Death, Other)
  Sender: FDA-Public Use
  Company Number: BR-ROCHE-2457096

PATIENT
  Age: 59 Year
  Sex: Female

DRUGS (11)
  1. KADCYLA [Suspect]
     Active Substance: ADO-TRASTUZUMAB EMTANSINE
     Indication: BREAST CANCER METASTATIC
     Dosage: THIRD LINE CHEMOTHERAPY
     Route: 065
     Dates: start: 20151013, end: 20161004
  2. HERCEPTIN [Suspect]
     Active Substance: TRASTUZUMAB
     Indication: BREAST CANCER METASTATIC
     Dosage: FIRST LINE CHEMOTHERAPY AND FORTH LINE CHEMOTHERAPY
     Route: 065
     Dates: start: 20141205, end: 20150529
  3. HERCEPTIN [Suspect]
     Active Substance: TRASTUZUMAB
     Route: 065
     Dates: start: 20170725, end: 20170809
  4. PACLITAXEL. [Suspect]
     Active Substance: PACLITAXEL
     Indication: BREAST CANCER METASTATIC
     Dosage: FIRST LINE CHEMOTHERAPY
     Route: 065
     Dates: start: 20141104, end: 20150403
  5. ZOLEDRONIC ACID [Suspect]
     Active Substance: ZOLEDRONIC ACID
     Indication: BREAST CANCER METASTATIC
     Dosage: FIRST LINE CHEMOTHERAPY
     Route: 065
     Dates: start: 201411, end: 20171107
  6. TAMOXIFEN [Suspect]
     Active Substance: TAMOXIFEN
     Indication: BREAST CANCER METASTATIC
     Dosage: SECOND LINE HORMONOTHERAPY
     Route: 065
     Dates: start: 20180118
  7. GEMCITABINE. [Suspect]
     Active Substance: GEMCITABINE
     Indication: BREAST CANCER METASTATIC
     Dosage: SECOND LINE CHEMOTHERAPY
     Route: 065
     Dates: start: 20150619, end: 20150828
  8. VINORELBINE [Suspect]
     Active Substance: VINORELBINE TARTRATE
     Indication: BREAST CANCER METASTATIC
     Dosage: FORTH LINE CHEMOTHERAPY
     Route: 065
     Dates: start: 2017, end: 2017
  9. LETROZOL [Suspect]
     Active Substance: LETROZOLE
     Indication: BREAST CANCER METASTATIC
     Dosage: FIRST LINE HORMONOTHERAPY
     Route: 065
     Dates: start: 20171031
  10. EXEMESTANE. [Suspect]
     Active Substance: EXEMESTANE
     Indication: BREAST CANCER METASTATIC
     Dosage: THIRD LINE HORMONOTHERAPY
     Route: 065
     Dates: start: 20180823
  11. XELODA [Suspect]
     Active Substance: CAPECITABINE
     Indication: BREAST CANCER METASTATIC
     Dosage: THIRD LINE CHEMOTHERAPY
     Route: 048

REACTIONS (3)
  - Performance status decreased [Unknown]
  - Thrombocytopenia [Unknown]
  - Death [Fatal]

NARRATIVE: CASE EVENT DATE: 20160913
